FAERS Safety Report 8974087 (Version 1)
Quarter: 2012Q4

REPORT INFORMATION
  Report Type: Spontaneous
  Country: US (occurrence: None)
  Receive Date: 20121217
  Receipt Date: 20121217
  Transmission Date: 20130627
  Serious: Yes (Hospitalization)
  Sender: FDA-Public Use
  Company Number: None

PATIENT
  Age: 86 Year
  Sex: Female

DRUGS (11)
  1. CLOPIDOGREL [Suspect]
     Route: 048
  2. DICLOFENAC [Suspect]
     Route: 048
  3. ULTRAM [Concomitant]
  4. COLACE [Concomitant]
  5. NORVASC [Concomitant]
  6. OMEPRAZOLE [Concomitant]
  7. ALBUTEROL [Concomitant]
  8. ATROVENT [Concomitant]
  9. MVI [Concomitant]
  10. VITAMIN C [Concomitant]
  11. SANTYL [Concomitant]

REACTIONS (3)
  - Gastrointestinal haemorrhage [None]
  - Blood potassium increased [None]
  - Blood pressure decreased [None]
